FAERS Safety Report 14844941 (Version 2)
Quarter: 2018Q2

REPORT INFORMATION
  Report Type: Spontaneous
  Country: JP (occurrence: JP)
  Receive Date: 20180504
  Receipt Date: 20180620
  Transmission Date: 20180711
  Serious: Yes (Death, Life-Threatening, Other)
  Sender: FDA-Public Use
  Company Number: JP-BAXTER-2018BAX008864

PATIENT
  Age: 48 Year
  Sex: Male

DRUGS (8)
  1. IFOSFAMIDE FOR INJECTION [Suspect]
     Active Substance: IFOSFAMIDE
     Dosage: ROSEN T-16 THERAPY
     Route: 041
     Dates: start: 20180227, end: 20180303
  2. ENDOXAN 1G [Suspect]
     Active Substance: CYCLOPHOSPHAMIDE
     Indication: LEIOMYOSARCOMA
     Dosage: ROSEN T-16 THERAPY
     Route: 065
     Dates: start: 20180227
  3. DOXORUBICIN HYDROCHLORIDE. [Suspect]
     Active Substance: DOXORUBICIN HYDROCHLORIDE
     Indication: PRODUCT USED FOR UNKNOWN INDICATION
     Route: 041
     Dates: start: 20180302, end: 20180303
  4. DOXORUBICIN HYDROCHLORIDE. [Suspect]
     Active Substance: DOXORUBICIN HYDROCHLORIDE
     Route: 065
     Dates: start: 20180302, end: 20180303
  5. VINCRISTINE SULFATE. [Suspect]
     Active Substance: VINCRISTINE SULFATE
     Indication: LEIOMYOSARCOMA
     Route: 065
     Dates: start: 20180227
  6. IFOSFAMIDE FOR INJECTION [Suspect]
     Active Substance: IFOSFAMIDE
     Indication: LEIOMYOSARCOMA
     Dosage: 2 G PER SQUARE METER OF BODY-SURFACE AREA
     Route: 041
     Dates: start: 20180305, end: 20180309
  7. CELLTOP 100 MG/5 ML, SOLUTION INJECTABLE POUR PERFUSION [Suspect]
     Active Substance: ETOPOSIDE
     Indication: LEIOMYOSARCOMA
     Route: 041
     Dates: start: 20180227, end: 20180301
  8. DOXORUBICIN HYDROCHLORIDE. [Suspect]
     Active Substance: DOXORUBICIN HYDROCHLORIDE
     Indication: LEIOMYOSARCOMA
     Route: 065
     Dates: start: 20180227

REACTIONS (4)
  - General physical health deterioration [Fatal]
  - Depressed level of consciousness [Recovering/Resolving]
  - Condition aggravated [Fatal]
  - Seizure [Recovering/Resolving]

NARRATIVE: CASE EVENT DATE: 20180303
